FAERS Safety Report 7093648-X (Version None)
Quarter: 2010Q4

REPORT INFORMATION
  Report Type: 
  Country: None (occurrence: None)
  Receive Date: 20101110
  Receipt Date: 20101029
  Transmission Date: 20110411
  Serious: Yes (Other)
  Sender: FDA-Public Use
  Company Number: US-ROCHE-737549

PATIENT
  Sex: Male
  Weight: 90 kg

DRUGS (2)
  1. ACCUTANE [Suspect]
     Indication: ACNE
     Route: 048
     Dates: start: 20050929, end: 20051227
  2. ACCUTANE [Suspect]
     Route: 048
     Dates: start: 20051228, end: 20060501

REACTIONS (5)
  - COLITIS ULCERATIVE [None]
  - INFLAMMATORY BOWEL DISEASE [None]
  - LIP DRY [None]
  - PATELLOFEMORAL PAIN SYNDROME [None]
  - RECTAL FISSURE [None]
